FAERS Safety Report 7224275-9 (Version None)
Quarter: 2011Q1

REPORT INFORMATION
  Report Type: 
  Country: None (occurrence: None)
  Receive Date: 20110104
  Receipt Date: 20101218
  Transmission Date: 20110831
  Serious: Yes (Life-Threatening, Hospitalization, Other)
  Sender: FDA-Public Use
  Company Number: 10-148

PATIENT
  Age: 20 Year
  Sex: Male

DRUGS (4)
  1. DOXYCYCLINE (NO PREF. NAME) [Suspect]
     Indication: TENOSYNOVITIS
  2. VANCOMYCIN (NO PREF. NAME) [Suspect]
     Indication: TENOSYNOVITIS
     Dosage: X1,
  3. CEFTRIAXONE [Suspect]
     Indication: TENOSYNOVITIS
     Dosage: X1;
  4. SEPTRA [Suspect]
     Indication: TENOSYNOVITIS

REACTIONS (14)
  - SPLENIC INFARCTION [None]
  - DRUG ERUPTION [None]
  - RENAL FAILURE [None]
  - SEPTIC SHOCK [None]
  - LICHENOID KERATOSIS [None]
  - UPPER RESPIRATORY TRACT INFECTION [None]
  - DISSEMINATED INTRAVASCULAR COAGULATION [None]
  - LYMPHADENOPATHY [None]
  - HUMAN HERPESVIRUS 6 INFECTION [None]
  - DRUG RASH WITH EOSINOPHILIA AND SYSTEMIC SYMPTOMS [None]
  - TRANSAMINASES INCREASED [None]
  - PYREXIA [None]
  - MYALGIA [None]
  - RESPIRATORY FAILURE [None]
